FAERS Safety Report 9366099 (Version 1)
Quarter: 2013Q2

REPORT INFORMATION
  Report Type: Spontaneous
  Country: US (occurrence: US)
  Receive Date: 20130625
  Receipt Date: 20130625
  Transmission Date: 20140414
  Serious: Yes (Hospitalization)
  Sender: FDA-Public Use
  Company Number: US-PFIZER INC-2013188711

PATIENT
  Age: 41 Year
  Sex: Female
  Weight: 50.79 kg

DRUGS (4)
  1. ALPRAZOLAM [Suspect]
     Indication: ANXIETY
     Dosage: 2 MG, AS NEEDED
     Route: 048
     Dates: start: 20130615
  2. ALPRAZOLAM [Suspect]
     Indication: PANIC ATTACK
  3. SUMATRIPTAN SUCCINATE [Suspect]
     Indication: MIGRAINE
     Dosage: 100 MG DAILY
     Dates: end: 2012
  4. SYNTHROID [Concomitant]
     Indication: BASEDOW^S DISEASE
     Dosage: 150 MCG DAILY

REACTIONS (5)
  - Coeliac disease [Unknown]
  - Malaise [Unknown]
  - Heart rate increased [Unknown]
  - Cardiac disorder [Unknown]
  - Drug ineffective [Unknown]
